FAERS Safety Report 10947480 (Version 2)
Quarter: 2015Q2

REPORT INFORMATION
  Report Type: Spontaneous
  Country: US (occurrence: US)
  Receive Date: 20150323
  Receipt Date: 20150409
  Transmission Date: 20150821
  Serious: Yes (Hospitalization, Other)
  Sender: FDA-Public Use
  Company Number: US-CELGENEUS-USA-2015033941

PATIENT
  Age: 67 Year
  Sex: Male
  Weight: 87.17 kg

DRUGS (2)
  1. REVLIMID [Suspect]
     Active Substance: LENALIDOMIDE
     Indication: PLASMA CELL MYELOMA
     Route: 048
     Dates: start: 20141128, end: 20150210
  2. REVLIMID [Suspect]
     Active Substance: LENALIDOMIDE
     Route: 048
     Dates: start: 20150311

REACTIONS (4)
  - Gastrointestinal haemorrhage [Unknown]
  - Protein total decreased [Recovered/Resolved]
  - Deep vein thrombosis [Unknown]
  - Pulmonary thrombosis [Recovered/Resolved]

NARRATIVE: CASE EVENT DATE: 20150210
